FAERS Safety Report 23898150 (Version 1)
Quarter: 2024Q2

REPORT INFORMATION
  Report Type: Report from Study
  Country: CA (occurrence: None)
  Receive Date: 20240524
  Receipt Date: 20240524
  Transmission Date: 20240716
  Serious: Yes (Other)
  Sender: FDA-Public Use
  Company Number: 2024A121292

PATIENT
  Sex: Male

DRUGS (5)
  1. PULMICORT TURBUHALER [Suspect]
     Active Substance: BUDESONIDE
     Indication: Asthma
     Dosage: 50 NEBULIZER 2X DAILY
     Route: 055
  2. PREDNISONE [Concomitant]
     Active Substance: PREDNISONE
     Dosage: 2 COURSES IN THE LAST 12 MONTHS
  3. VENTOLIN [Concomitant]
     Active Substance: ALBUTEROL SULFATE
     Dosage: AS NEEDED AS REQUIRED
  4. VENTOLIN [Concomitant]
     Active Substance: ALBUTEROL SULFATE
     Dosage: NEBULIZER 2X DAILY AS REQUIRED
  5. TREGELY ELLIPTA [Concomitant]
     Dosage: 1 PUFF 1X DAILY

REACTIONS (2)
  - Lung carcinoma cell type unspecified stage IV [Unknown]
  - Prostate cancer stage IV [Unknown]
